FAERS Safety Report 5035989-3 (Version None)
Quarter: 2006Q2

REPORT INFORMATION
  Report Type: 
  Country: None (occurrence: None)
  Receive Date: 20060526
  Receipt Date: 20060317
  Transmission Date: 20061013
  Serious: Yes (Hospitalization)
  Sender: FDA-Public Use
  Company Number: 222302

PATIENT
  Age: 32 Year
  Sex: Male

DRUGS (3)
  1. RAPTIVA [Suspect]
     Indication: PSORIASIS
     Dosage: 0.8 ML, 1/WEEK, SUBCUTANEOUS
     Route: 058
     Dates: end: 20060201
  2. CYCLOSPORINE [Concomitant]
  3. SORIATANE [Concomitant]

REACTIONS (2)
  - PSORIASIS [None]
  - STAPHYLOCOCCAL SEPSIS [None]
